FAERS Safety Report 4947387-9 (Version None)
Quarter: 2006Q1

REPORT INFORMATION
  Report Type: 
  Country: None (occurrence: None)
  Receive Date: 20060317
  Receipt Date: 20050420
  Transmission Date: 20060701
  Serious: Yes (Other)
  Sender: FDA-Public Use
  Company Number: US-MERCK-0504USA03956

PATIENT
  Age: 56 Year
  Sex: Male
  Weight: 107 kg

DRUGS (4)
  1. VIOXX [Suspect]
     Indication: ARTHRALGIA
     Route: 048
     Dates: start: 20030901, end: 20040904
  2. IBUPROFEN [Concomitant]
     Route: 065
  3. DARVOCET [Concomitant]
     Route: 065
  4. VALTREX [Concomitant]
     Route: 065

REACTIONS (6)
  - ATROPHY [None]
  - CORONARY ARTERY OCCLUSION [None]
  - HEADACHE [None]
  - HERPES ZOSTER [None]
  - MALAISE [None]
  - SPINAL OSTEOARTHRITIS [None]
